FAERS Safety Report 4982782-3 (Version None)
Quarter: 2006Q2

REPORT INFORMATION
  Report Type: 
  Country: None (occurrence: None)
  Receive Date: 20060425
  Receipt Date: 20050825
  Transmission Date: 20061013
  Serious: Yes (Hospitalization, Disabling)
  Sender: FDA-Public Use
  Company Number: US-MERCK-0508USA04344

PATIENT
  Age: 57 Year
  Sex: Female
  Weight: 75 kg

DRUGS (1)
  1. VIOXX [Suspect]
     Indication: ARTHRITIS
     Route: 048
     Dates: start: 20000525, end: 20010625

REACTIONS (5)
  - CEREBELLAR INFARCTION [None]
  - INFARCTION [None]
  - RESPIRATORY FAILURE [None]
  - SINUS BRADYCARDIA [None]
  - SUBDURAL HYGROMA [None]
